FAERS Safety Report 10210223 (Version 1)
Quarter: 2014Q2

REPORT INFORMATION
  Report Type: Spontaneous
  Country: US (occurrence: None)
  Receive Date: 20140529
  Receipt Date: 20140529
  Transmission Date: 20141212
  Serious: Yes (Hospitalization)
  Sender: FDA-Public Use
  Company Number: None

PATIENT
  Age: 59 Year
  Sex: Male

DRUGS (9)
  1. PEGINTRON [Suspect]
     Route: 058
     Dates: start: 20140510
  2. LISINOPRIL [Concomitant]
  3. GABAPENTIIN [Concomitant]
  4. NETHADONE [Concomitant]
  5. BACLOFEN [Concomitant]
  6. AMITRIPTYLINE [Concomitant]
  7. BACTRIM DS [Concomitant]
  8. ADVIL [Concomitant]
  9. ZYRTEC [Concomitant]

REACTIONS (6)
  - Depression [None]
  - Dizziness [None]
  - Asthenia [None]
  - Weight decreased [None]
  - Decreased appetite [None]
  - Suicidal ideation [None]
